FAERS Safety Report 7068172-0 (Version None)
Quarter: 2010Q4

REPORT INFORMATION
  Report Type: 
  Country: None (occurrence: None)
  Receive Date: 20101027
  Receipt Date: 20101027
  Transmission Date: 20110411
  Serious: Yes (Death)
  Sender: FDA-Public Use
  Company Number: None

PATIENT
  Age: 55 Year
  Sex: Female
  Weight: 58.9676 kg

DRUGS (7)
  1. AMBIEN [Suspect]
     Indication: ANXIETY
  2. AMBIEN [Suspect]
     Indication: DEPRESSION
  3. PRISTIQ [Suspect]
     Indication: INSOMNIA
  4. KLONOPIN [Concomitant]
  5. PROZAC [Concomitant]
  6. WELLBUTRIN [Concomitant]
  7. PAXIL [Concomitant]

REACTIONS (7)
  - ABNORMAL BEHAVIOUR [None]
  - ANXIETY [None]
  - CONDITION AGGRAVATED [None]
  - DEPRESSION [None]
  - DRUG INEFFECTIVE [None]
  - INSOMNIA [None]
  - ROAD TRAFFIC ACCIDENT [None]
